FAERS Safety Report 6439209-4 (Version None)
Quarter: 2009Q4

REPORT INFORMATION
  Report Type: 
  Country: None (occurrence: None)
  Receive Date: 20091113
  Receipt Date: 20091102
  Transmission Date: 20100525
  Serious: Yes (Hospitalization, Congenital Anomaly, Other)
  Sender: FDA-Public Use
  Company Number: KR-ELI_LILLY_AND_COMPANY-KR200910008024

PATIENT

DRUGS (3)
  1. ZYPREXA [Suspect]
     Dosage: 200 MG, UNK
     Route: 064
  2. DIAZEPAM [Concomitant]
     Dosage: 20 MG, UNK
     Route: 064
  3. ZOLPIDEM [Concomitant]
     Dosage: 200 MG, UNK
     Route: 064

REACTIONS (6)
  - CRYPTORCHISM [None]
  - DECREASED ACTIVITY [None]
  - DRUG EXPOSURE DURING PREGNANCY [None]
  - DYSPNOEA [None]
  - FOETAL HEART RATE DECELERATION [None]
  - PYELOCALIECTASIS [None]
